FAERS Safety Report 5994702-3 (Version None)
Quarter: 2008Q4

REPORT INFORMATION
  Report Type: 
  Country: None (occurrence: None)
  Receive Date: 20081210
  Receipt Date: 20081125
  Transmission Date: 20090506
  Serious: Yes (Other)
  Sender: FDA-Public Use
  Company Number: 2008S1021144

PATIENT
  Age: 57 Year
  Sex: Male

DRUGS (2)
  1. DICLOFENAC (DICLOFENAC) [Suspect]
     Indication: OSTEOARTHRITIS
     Dosage: 50 MG; TWICE A DAY; ORAL
     Route: 048
     Dates: start: 20080201, end: 20081001
  2. NEXIUM [Suspect]
     Indication: GASTRITIS
     Dosage: 20 MG;DAILYL ORAL
     Route: 048
     Dates: start: 20080201, end: 20081001

REACTIONS (5)
  - COUGH [None]
  - EOSINOPHILIA [None]
  - GLOMERULONEPHRITIS [None]
  - LYMPHADENITIS [None]
  - MEDIASTINAL DISORDER [None]
